FAERS Safety Report 5079843-X (Version None)
Quarter: 2006Q3

REPORT INFORMATION
  Report Type: 
  Country: None (occurrence: None)
  Receive Date: 20060720
  Receipt Date: 20050718
  Transmission Date: 20061208
  Serious: Yes (Hospitalization)
  Sender: FDA-Public Use
  Company Number: 2005081836

PATIENT
  Age: 64 Year
  Sex: Female
  Weight: 54.4316 kg

DRUGS (2)
  1. CELEBREX [Suspect]
     Indication: ARTHRITIS
     Dosage: (1 IN 1 D),ORAL
     Route: 048
     Dates: start: 20040329, end: 20040921
  2. CELEBREX [Suspect]
     Indication: OSTEOARTHRITIS
     Dosage: (1 IN 1 D),ORAL
     Route: 048
     Dates: start: 20040329, end: 20040921

REACTIONS (5)
  - BODY HEIGHT DECREASED [None]
  - EPISTAXIS [None]
  - GASTROINTESTINAL PAIN [None]
  - MELAENA [None]
  - PAIN [None]
